FAERS Safety Report 13736560 (Version 1)
Quarter: 2017Q3

REPORT INFORMATION
  Report Type: Spontaneous
  Country: US (occurrence: US)
  Receive Date: 20170710
  Receipt Date: 20170710
  Transmission Date: 20171127
  Serious: Yes (Life-Threatening, Other)
  Sender: FDA-Public Use
  Company Number: US-QILU PHARMACEUTICAL CO.LTD.-QLU-000095-2017

PATIENT
  Age: 5 Year
  Sex: Female
  Weight: 20.2 kg

DRUGS (2)
  1. VEMURAFENIB. [Concomitant]
     Active Substance: VEMURAFENIB
     Indication: PRODUCT USED FOR UNKNOWN INDICATION
     Dosage: UNK
     Route: 065
  2. CEFTRIAXONE. [Suspect]
     Active Substance: CEFTRIAXONE
     Indication: PRODUCT USED FOR UNKNOWN INDICATION
     Dosage: 50 MG/KG, UNK
     Route: 042

REACTIONS (9)
  - Platelet count decreased [Unknown]
  - Haemolytic anaemia [Recovered/Resolved]
  - Prothrombin time prolonged [Unknown]
  - Fibrin D dimer increased [Unknown]
  - Vomiting [Recovered/Resolved]
  - Haemoglobin decreased [Unknown]
  - Hypotension [Recovered/Resolved]
  - Activated partial thromboplastin time prolonged [Unknown]
  - Abdominal pain [Recovered/Resolved]
